FAERS Safety Report 6682591-3 (Version None)
Quarter: 2010Q2

REPORT INFORMATION
  Report Type: 
  Country: None (occurrence: None)
  Receive Date: 20100415
  Receipt Date: 20100413
  Transmission Date: 20101027
  Serious: Yes (Death, Disabling, Other)
  Sender: FDA-Public Use
  Company Number: PHHY2010GB03526

PATIENT
  Sex: Male

DRUGS (17)
  1. CLOZARIL [Suspect]
     Indication: SCHIZOPHRENIA
     Dosage: 900 MG/DAY
     Route: 048
     Dates: start: 19920106
  2. CLOZARIL [Suspect]
     Dosage: UNK
     Dates: end: 20100317
  3. PROCYCLIDINE HYDROCHLORIDE 2MG TAB [Concomitant]
     Dosage: 5 MG, BID
     Route: 048
  4. VALPROATE SODIUM [Concomitant]
     Dosage: 1300MG DAILY
     Route: 048
  5. HALOPERIDOL [Concomitant]
     Dosage: 5 MG, PRN
     Route: 048
  6. LORAZEPAM [Concomitant]
     Dosage: 1 MG, PRN
     Route: 048
  7. ASPIRIN [Concomitant]
     Dosage: 75MG DAILY
     Route: 048
  8. BUMETANIDE [Concomitant]
     Dosage: 2MG DAILY
     Route: 048
  9. DICLOFENAC SODIUM [Concomitant]
     Dosage: 2 TABLETS DAILY
     Route: 048
  10. MISOPROSTOL [Concomitant]
     Dosage: 2 TABLETS DAILY
  11. SENNA [Concomitant]
     Dosage: 15MG DAILY
     Route: 048
  12. LACTULOSE [Concomitant]
     Dosage: 30ML DAILY
     Route: 048
  13. NITROGLYCERIN [Concomitant]
  14. IPRATROPIUM [Concomitant]
  15. SALBUTAMOL [Concomitant]
  16. SIMVASTATIN [Concomitant]
     Dosage: 40MG DAILY
     Route: 048
  17. TRAMADOL HCL [Concomitant]

REACTIONS (17)
  - ALANINE AMINOTRANSFERASE INCREASED [None]
  - ANTIPSYCHOTIC DRUG LEVEL INCREASED [None]
  - ARTHRITIS [None]
  - ASTHMA [None]
  - BLOOD ALBUMIN DECREASED [None]
  - BLOOD ALKALINE PHOSPHATASE INCREASED [None]
  - BLOOD CHOLESTEROL INCREASED [None]
  - DYSPHAGIA [None]
  - GAMMA-GLUTAMYLTRANSFERASE INCREASED [None]
  - GENERAL PHYSICAL HEALTH DETERIORATION [None]
  - HAEMOGLOBIN DECREASED [None]
  - HAEMORRHOIDS [None]
  - LUNG NEOPLASM MALIGNANT [None]
  - PLATELET COUNT INCREASED [None]
  - RED BLOOD CELL COUNT DECREASED [None]
  - TOTAL CHOLESTEROL/HDL RATIO INCREASED [None]
  - WHITE BLOOD CELL COUNT INCREASED [None]
